FAERS Safety Report 7864418-7 (Version None)
Quarter: 2011Q4

REPORT INFORMATION
  Report Type: 
  Country: None (occurrence: None)
  Receive Date: 20111028
  Receipt Date: 20111013
  Transmission Date: 20120403
  Serious: Yes (Hospitalization)
  Sender: FDA-Public Use
  Company Number: PHHO2009DE13039

PATIENT
  Age: 51 Year
  Sex: Female

DRUGS (3)
  1. EVEROLIMUS [Suspect]
     Indication: IMMUNOSUPPRESSION
  2. MYFORTIC [Suspect]
     Indication: RENAL TRANSPLANT
     Dosage: 360 MG, TID
     Route: 048
     Dates: start: 20090701
  3. EVEROLIMUS [Suspect]
     Indication: RENAL TRANSPLANT
     Dosage: 1.5 MG, TID
     Route: 048
     Dates: start: 20091009

REACTIONS (2)
  - RENAL FAILURE ACUTE [None]
  - BLOOD CREATININE INCREASED [None]
